FAERS Safety Report 9233576 (Version 1)
Quarter: 2013Q2

REPORT INFORMATION
  Report Type: Spontaneous
  Country: US (occurrence: US)
  Receive Date: 20130416
  Receipt Date: 20130416
  Transmission Date: 20140414
  Serious: No
  Sender: FDA-Public Use
  Company Number: US-BANPHARM-20120359

PATIENT
  Age: 69 Year
  Sex: Male
  Weight: 79.38 kg

DRUGS (4)
  1. ALEVE LIQUID GELS 220MG [Suspect]
     Dosage: 1 DF, QD,
     Route: 048
     Dates: start: 201206
  2. MULTI VITAMIN [Concomitant]
  3. VITAMIN D [Concomitant]
  4. BLOOD PRESSURE MEDICATION [Concomitant]
     Indication: HYPERTENSION

REACTIONS (1)
  - Somnolence [Not Recovered/Not Resolved]
